FAERS Safety Report 21675317 (Version 1)
Quarter: 2022Q4

REPORT INFORMATION
  Report Type: Spontaneous
  Country: DE (occurrence: DE)
  Receive Date: 20221202
  Receipt Date: 20221202
  Transmission Date: 20230113
  Serious: Yes (Hospitalization, Disabling, Other)
  Sender: FDA-Public Use
  Company Number: DE-DCGMA-21194376

PATIENT
  Age: 76 Year
  Sex: Male

DRUGS (11)
  1. CARBOPLATIN [Suspect]
     Active Substance: CARBOPLATIN
     Indication: Transitional cell carcinoma metastatic
     Dosage: AUC2 ON DAY 1, 8, 15?ROA-20045000
     Route: 042
     Dates: end: 20210602
  2. CARBOPLATIN [Suspect]
     Active Substance: CARBOPLATIN
     Indication: Bladder transitional cell carcinoma
  3. GEMCITABINE [Suspect]
     Active Substance: GEMCITABINE
     Indication: Bladder transitional cell carcinoma
     Dosage: ON DAY 1, 8, 15?1000 MG/M2?ROA-20045000
     Route: 042
     Dates: end: 20210512
  4. GEMCITABINE [Suspect]
     Active Substance: GEMCITABINE
     Indication: Transitional cell carcinoma metastatic
  5. METFORMIN [Concomitant]
     Active Substance: METFORMIN HYDROCHLORIDE
     Indication: Diabetes mellitus
     Dosage: 2000 (UNIT NOT PROVIDED)/DAY?ROA-20053000
     Route: 048
  6. CANDESARTAN COMP 16/12.5 [Concomitant]
     Indication: Hypertension
     Dosage: 16/15.5 (UNIT NOT PROVIDED)/DAY?ROA-20053000
     Route: 048
  7. ASPIRIN [Concomitant]
     Active Substance: ASPIRIN
     Indication: Coronary artery disease
     Dosage: 100MG?ROA-20053000
     Route: 048
  8. ATORVASTATIN [Concomitant]
     Active Substance: ATORVASTATIN
     Indication: Hypercholesterolaemia
     Dosage: 80 (UNIT NOT PROVIDED)/DAY?ROA-20053000
     Route: 048
  9. METOPROLOL [Concomitant]
     Active Substance: METOPROLOL
     Indication: Hypertension
     Dosage: 47.5 (UNIT NOT PROVIDED)/DAY?ROA-20053000
     Route: 048
  10. PRAVASTATIN [Concomitant]
     Active Substance: PRAVASTATIN
     Indication: Hypercholesterolaemia
     Dosage: 20 (UNIT NOT PROVIDED)/DAY?ROA-20053000
     Route: 048
  11. AMLODIPINE BESYLATE [Concomitant]
     Active Substance: AMLODIPINE BESYLATE
     Indication: Hypertension
     Dosage: 10MG?ROA-20053000
     Route: 048

REACTIONS (4)
  - Peripheral artery occlusion [Not Recovered/Not Resolved]
  - Vasculitis [Recovered/Resolved with Sequelae]
  - Necrosis [Recovered/Resolved with Sequelae]
  - Amputation [Not Recovered/Not Resolved]

NARRATIVE: CASE EVENT DATE: 20210510
